FAERS Safety Report 15778300 (Version 2)
Quarter: 2019Q1

REPORT INFORMATION
  Report Type: Spontaneous
  Country: CN (occurrence: CN)
  Receive Date: 20181231
  Receipt Date: 20190125
  Transmission Date: 20190417
  Serious: Yes (Other)
  Sender: FDA-Public Use
  Company Number: CN-BAUSCH-BL-2018-036024

PATIENT
  Age: 48 Year
  Sex: Female

DRUGS (1)
  1. VISUDYNE [Suspect]
     Active Substance: VERTEPORFIN
     Indication: CHORIORETINOPATHY
     Route: 040
     Dates: start: 20181213

REACTIONS (11)
  - Somnolence [Unknown]
  - Injection site pain [Unknown]
  - Discomfort [Unknown]
  - Syncope [Unknown]
  - Blood pressure decreased [Recovered/Resolved]
  - Visual acuity reduced [Unknown]
  - Loss of consciousness [Recovered/Resolved]
  - Fatigue [Unknown]
  - Hypersensitivity [Unknown]
  - Hyperhidrosis [Unknown]
  - Dizziness [Recovered/Resolved]

NARRATIVE: CASE EVENT DATE: 20181213
